FAERS Safety Report 15994436 (Version 4)
Quarter: 2019Q2

REPORT INFORMATION
  Report Type: Report from Study
  Country: None (occurrence: US)
  Receive Date: 20190222
  Receipt Date: 20190520
  Transmission Date: 20190711
  Serious: Yes (Other)
  Sender: FDA-Public Use
  Company Number: US-ABBVIE-19S-163-2675306-00

PATIENT
  Age: 71 Year
  Sex: Female
  Weight: 39.04 kg

DRUGS (15)
  1. DUOPA [Suspect]
     Active Substance: CARBIDOPA\LEVODOPA
     Indication: PARKINSON^S DISEASE
     Route: 050
     Dates: start: 20160328
  2. CLONAZEPAM. [Concomitant]
     Active Substance: CLONAZEPAM
     Indication: ANXIETY
     Route: 048
     Dates: start: 20180924
  3. PEPCID [Concomitant]
     Active Substance: FAMOTIDINE
     Indication: PRODUCT USED FOR UNKNOWN INDICATION
     Route: 048
     Dates: start: 20160324
  4. ZYRTEC [Concomitant]
     Active Substance: CETIRIZINE HYDROCHLORIDE
     Indication: RHINORRHOEA
     Route: 048
     Dates: start: 20170912
  5. VITAMIN D3 [Concomitant]
     Active Substance: CHOLECALCIFEROL
     Indication: SUPPLEMENTATION THERAPY
     Route: 048
     Dates: start: 20170912
  6. PRAVASTATIN. [Concomitant]
     Active Substance: PRAVASTATIN
     Indication: HYPERCHOLESTEROLAEMIA
     Route: 048
     Dates: start: 20160324
  7. WELLBUTRIN [Concomitant]
     Active Substance: BUPROPION HYDROCHLORIDE
     Indication: DEPRESSION
     Route: 048
     Dates: start: 20160324
  8. AMANTADINE. [Suspect]
     Active Substance: AMANTADINE HYDROCHLORIDE
     Indication: DYSKINESIA
     Route: 048
     Dates: start: 20181119
  9. DUOPA [Suspect]
     Active Substance: CARBIDOPA\LEVODOPA
     Dosage: 100 ML DAILY
     Route: 050
     Dates: start: 20190121
  10. MIRALAX [Concomitant]
     Active Substance: POLYETHYLENE GLYCOL 3350
     Indication: CONSTIPATION
     Route: 048
     Dates: start: 20181119
  11. AMANTADINE. [Suspect]
     Active Substance: AMANTADINE HYDROCHLORIDE
     Dosage: 300 MG QPM
     Route: 048
     Dates: start: 20190109
  12. BOTOX [Suspect]
     Active Substance: ONABOTULINUMTOXINA
     Indication: MUSCULOSKELETAL STIFFNESS
     Route: 050
     Dates: start: 20190212, end: 20190212
  13. MELATONIN [Concomitant]
     Active Substance: MELATONIN
     Indication: SLEEP DISORDER
     Route: 048
     Dates: start: 20180924
  14. VITAMIN D3 [Concomitant]
     Active Substance: CHOLECALCIFEROL
     Indication: VITAMIN D DECREASED
  15. TYLENOL [Concomitant]
     Active Substance: ACETAMINOPHEN
     Indication: PRODUCT USED FOR UNKNOWN INDICATION
     Route: 048
     Dates: start: 20170912

REACTIONS (26)
  - Seizure [Recovered/Resolved]
  - Spinal osteoarthritis [Not Recovered/Not Resolved]
  - Tremor [Recovered/Resolved]
  - Dyskinesia [Recovering/Resolving]
  - Contusion [Recovering/Resolving]
  - Oedema peripheral [Not Recovered/Not Resolved]
  - Hallucination, auditory [Recovered/Resolved]
  - Hypotension [Recovering/Resolving]
  - Hallucination, visual [Recovered/Resolved]
  - Disorientation [Recovered/Resolved]
  - Dehydration [Recovering/Resolving]
  - Chest discomfort [Recovered/Resolved]
  - Decreased appetite [Not Recovered/Not Resolved]
  - Pain [Not Recovered/Not Resolved]
  - Abnormal loss of weight [Not Recovered/Not Resolved]
  - Diplopia [Not Recovered/Not Resolved]
  - Syncope [Recovering/Resolving]
  - Anxiety [Not Recovered/Not Resolved]
  - Fall [Recovered/Resolved]
  - Feeding disorder [Not Recovered/Not Resolved]
  - Mastication disorder [Not Recovered/Not Resolved]
  - Musculoskeletal stiffness [Not Recovered/Not Resolved]
  - Insomnia [Not Recovered/Not Resolved]
  - Speech disorder [Recovered/Resolved]
  - Musculoskeletal pain [Not Recovered/Not Resolved]
  - Peripheral swelling [Not Recovered/Not Resolved]

NARRATIVE: CASE EVENT DATE: 2016
